FAERS Safety Report 6589844-8 (Version None)
Quarter: 2010Q1

REPORT INFORMATION
  Report Type: 
  Country: None (occurrence: None)
  Receive Date: 20100219
  Receipt Date: 20100209
  Transmission Date: 20100710
  Serious: Yes (Hospitalization)
  Sender: FDA-Public Use
  Company Number: JP-JNJFOC-20091007742

PATIENT
  Sex: Female
  Weight: 71 kg

DRUGS (12)
  1. DOXORUBICIN HCL [Suspect]
     Indication: OVARIAN CANCER RECURRENT
     Route: 042
  2. DOXORUBICIN HCL [Suspect]
     Route: 042
  3. PREDNISOLONE [Concomitant]
     Route: 048
  4. SULFAMETHOXAZOLE AND TRIMETHOPRIM [Concomitant]
     Route: 048
  5. ALFACALCIDOL [Concomitant]
     Route: 048
  6. FAMOTIDINE [Concomitant]
     Route: 048
  7. MAGNESIUM OXIDE [Concomitant]
     Route: 048
  8. BROTIZOLAM [Concomitant]
     Route: 048
  9. NEUROVITAN [Concomitant]
     Indication: PROPHYLAXIS
     Route: 048
  10. RABEPRAZOLE SODIUM [Concomitant]
     Route: 048
  11. OLANZAPINE [Concomitant]
     Route: 048
  12. FEXOFENADINE [Concomitant]
     Route: 048

REACTIONS (2)
  - EPIDERMOLYSIS [None]
  - PALMAR-PLANTAR ERYTHRODYSAESTHESIA SYNDROME [None]
